FAERS Safety Report 8127130-5 (Version None)
Quarter: 2012Q1

REPORT INFORMATION
  Report Type: 
  Country: None (occurrence: None)
  Receive Date: 20120210
  Receipt Date: 20120202
  Transmission Date: 20120608
  Serious: Yes (Hospitalization)
  Sender: FDA-Public Use
  Company Number: GB-JNJFOC-20120203771

PATIENT
  Sex: Male
  Weight: 103 kg

DRUGS (6)
  1. CITALOPRAM HYDROBROMIDE [Concomitant]
     Route: 065
  2. PALIPERIDONE PALMITATE [Suspect]
     Route: 030
     Dates: start: 20111006
  3. OLANZAPINE [Concomitant]
     Indication: SLEEP DISORDER
     Route: 065
     Dates: start: 20120130
  4. PALIPERIDONE PALMITATE [Suspect]
     Indication: SCHIZOPHRENIA
     Route: 030
     Dates: start: 20120109
  5. OLANZAPINE [Concomitant]
     Route: 065
  6. CITALOPRAM HYDROBROMIDE [Concomitant]
     Indication: ANXIETY
     Route: 065
     Dates: start: 20120130

REACTIONS (5)
  - HALLUCINATION, AUDITORY [None]
  - PARANOIA [None]
  - THINKING ABNORMAL [None]
  - PSYCHOTIC DISORDER [None]
  - SCHIZOPHRENIA, PARANOID TYPE [None]
